FAERS Safety Report 5299748-9 (Version None)
Quarter: 2007Q2

REPORT INFORMATION
  Report Type: 
  Country: None (occurrence: None)
  Receive Date: 20070410
  Receipt Date: 20070326
  Transmission Date: 20071010
  Serious: Yes (Disabling, Other)
  Sender: FDA-Public Use
  Company Number: 070315-0000298

PATIENT
  Age: 22 Day
  Sex: Male
  Weight: 0.62 kg

DRUGS (13)
  1. INDOCIN [Suspect]
     Indication: PATENT DUCTUS ARTERIOSUS
     Dosage: SEE IMAGE
     Dates: start: 20060301, end: 20060301
  2. INDOCIN [Suspect]
     Indication: PATENT DUCTUS ARTERIOSUS
     Dosage: SEE IMAGE
     Dates: start: 20060303, end: 20060303
  3. INDOCIN [Suspect]
     Indication: PATENT DUCTUS ARTERIOSUS
     Dosage: SEE IMAGE
     Dates: start: 20060304, end: 20060304
  4. INDOCIN [Suspect]
     Indication: PATENT DUCTUS ARTERIOSUS
     Dosage: SEE IMAGE
     Dates: start: 20060306, end: 20060306
  5. INDOCIN [Suspect]
     Indication: PATENT DUCTUS ARTERIOSUS
     Dosage: SEE IMAGE
     Dates: start: 20060320, end: 20060320
  6. INDOCIN [Suspect]
     Indication: PATENT DUCTUS ARTERIOSUS
     Dosage: SEE IMAGE
     Dates: start: 20060322, end: 20060322
  7. INDOCIN [Suspect]
     Indication: PATENT DUCTUS ARTERIOSUS
     Dosage: SEE IMAGE
     Dates: start: 20060324, end: 20060324
  8. INDOCIN [Suspect]
     Indication: PATENT DUCTUS ARTERIOSUS
     Dosage: SEE IMAGE
     Dates: start: 20060327, end: 20060327
  9. VANCOMYCIN HYDROCHLORIDE [Suspect]
     Indication: INFECTION
     Dosage: 8 MG; QD; INJ
     Dates: start: 20060312, end: 20060322
  10. VANCOMYCIN HYDROCHLORIDE [Suspect]
     Indication: SEPSIS
     Dosage: 8 MG; QD; INJ
     Dates: start: 20060312, end: 20060322
  11. BERACTANT (BERACTANT) [Suspect]
     Indication: NEONATAL RESPIRATORY DISTRESS SYNDROME
     Dosage: 1 DOSE; QD
     Dates: start: 20060301, end: 20060301
  12. BERACTANT (BERACTANT) [Suspect]
     Indication: SEPSIS
     Dosage: 1 DOSE; QD
     Dates: start: 20060301, end: 20060301
  13. HUMULIN N [Suspect]
     Indication: HYPERGLYCAEMIA
     Dosage: 0.12 U; QD; IV
     Route: 042
     Dates: start: 20060316, end: 20060320

REACTIONS (17)
  - ABDOMINAL DISTENSION [None]
  - C-REACTIVE PROTEIN INCREASED [None]
  - CATHETER SEPSIS [None]
  - DEAFNESS [None]
  - DEVELOPMENTAL DELAY [None]
  - DRUG INEFFECTIVE [None]
  - GROWTH RETARDATION [None]
  - HAEMOLYSIS [None]
  - HEPATIC FUNCTION ABNORMAL [None]
  - HYPERBILIRUBINAEMIA [None]
  - HYPERGLYCAEMIA [None]
  - JAUNDICE NEONATAL [None]
  - MELAENA [None]
  - NEONATAL RESPIRATORY DISTRESS SYNDROME [None]
  - PANCYTOPENIA [None]
  - PSYCHOMOTOR SKILLS IMPAIRED [None]
  - RENAL IMPAIRMENT [None]
